FAERS Safety Report 6082153-5 (Version None)
Quarter: 2009Q1

REPORT INFORMATION
  Report Type: 
  Country: None (occurrence: None)
  Receive Date: 20090218
  Receipt Date: 20090212
  Transmission Date: 20090719
  Serious: Yes (Congenital Anomaly)
  Sender: FDA-Public Use
  Company Number: A0680978A

PATIENT
  Sex: Female

DRUGS (5)
  1. PAXIL [Suspect]
     Indication: DEPRESSION
     Dates: start: 20030101, end: 20050101
  2. PAROXETINE HCL [Suspect]
     Indication: DEPRESSION
     Dates: start: 20030101, end: 20050101
  3. NIFEDIPINE [Concomitant]
  4. BETAMETHASONE [Concomitant]
  5. MAGNESIUM SULFATE [Concomitant]

REACTIONS (6)
  - CARDIAC MURMUR [None]
  - CONGENITAL ANOMALY [None]
  - DRUG EXPOSURE DURING PREGNANCY [None]
  - MYOPIA [None]
  - PLAGIOCEPHALY [None]
  - PREMATURE BABY [None]
